FAERS Safety Report 9868335 (Version 2)
Quarter: 2014Q1

REPORT INFORMATION
  Report Type: Report from Study
  Country: CA (occurrence: CA)
  Receive Date: 20140204
  Receipt Date: 20140227
  Transmission Date: 20141002
  Serious: Yes (Hospitalization, Other)
  Sender: FDA-Public Use
  Company Number: CA-JNJFOC-20140118807

PATIENT
  Sex: Female
  Weight: 59.5 kg

DRUGS (8)
  1. REMICADE [Suspect]
     Indication: RHEUMATOID ARTHRITIS
     Dosage: STARTED PRIOR TO 2006
     Route: 042
  2. REMICADE [Suspect]
     Indication: RHEUMATOID ARTHRITIS
     Route: 042
     Dates: start: 20070201
  3. REMICADE [Suspect]
     Indication: RHEUMATOID ARTHRITIS
     Route: 042
     Dates: start: 20131230
  4. METHOTREXATE [Concomitant]
     Route: 065
  5. NEXIUM [Concomitant]
     Route: 065
  6. SYNTHROID [Concomitant]
     Route: 065
  7. FOLIC ACID [Concomitant]
     Route: 065
  8. FOSAMAX [Concomitant]
     Route: 065

REACTIONS (1)
  - Ovarian cyst [Recovering/Resolving]
